FAERS Safety Report 9060545 (Version 5)
Quarter: 2013Q2

REPORT INFORMATION
  Report Type: Spontaneous
  Country: US (occurrence: US)
  Receive Date: 20130212
  Receipt Date: 20130522
  Transmission Date: 20140414
  Serious: Yes (Hospitalization)
  Sender: FDA-Public Use
  Company Number: US-B.I. PHARMACEUTICALS,INC./RIDGEFIELD-2013-BI-03366BP

PATIENT
  Age: 65 Year
  Sex: Female
  Weight: 49.9 kg

DRUGS (15)
  1. PRADAXA [Suspect]
     Indication: ANTICOAGULANT THERAPY
     Dosage: 300 MG
     Route: 048
     Dates: start: 20110417, end: 20110521
  2. PRADAXA [Suspect]
     Indication: ATRIAL FIBRILLATION
  3. CARVEDILOL [Concomitant]
     Dosage: 25 MG
     Route: 048
  4. FUROSEMIDE [Concomitant]
     Dosage: 20 MG
     Route: 048
  5. LISINOPRIL [Concomitant]
     Dosage: 5 MG
     Route: 048
  6. SYMBICORT [Concomitant]
     Route: 055
  7. DUONEB [Concomitant]
  8. COMBIVENT INHALER [Concomitant]
     Indication: DYSPNOEA
     Route: 055
  9. PRAVASTATIN [Concomitant]
     Dosage: 40 MG
     Route: 048
  10. ACETAMINOPHEN [Concomitant]
     Indication: PAIN
     Route: 048
  11. CIPROFLOXACIN [Concomitant]
     Dosage: 500 MG
     Route: 048
  12. VITAMIN B12 [Concomitant]
     Dosage: 1000 MCG
     Route: 048
  13. CARDIZEM CD [Concomitant]
     Dosage: 240 MG
     Route: 048
  14. LANSOPRAZOLE [Concomitant]
     Dosage: 30 MG
     Route: 048
  15. OXYGEN [Concomitant]
     Route: 055

REACTIONS (7)
  - Upper gastrointestinal haemorrhage [Unknown]
  - Lower gastrointestinal haemorrhage [Recovered/Resolved]
  - Acute respiratory failure [Unknown]
  - Gastritis erosive [Unknown]
  - Gastric ulcer [Unknown]
  - Haematochezia [Unknown]
  - Haemorrhagic anaemia [Unknown]
